FAERS Safety Report 4519849-X (Version None)
Quarter: 2004Q4

REPORT INFORMATION
  Report Type: 
  Country: None (occurrence: None)
  Receive Date: 20041207
  Receipt Date: 20040914
  Transmission Date: 20050328
  Serious: Yes (Death, Other)
  Sender: FDA-Public Use
  Company Number: PHFR2004GB03468

PATIENT
  Sex: Male

DRUGS (1)
  1. VOLTAREN [Suspect]
     Indication: PANCREATIC CARCINOMA
     Route: 048
     Dates: start: 20040714

REACTIONS (7)
  - BRONCHOPNEUMONIA [None]
  - CIRCULATORY COLLAPSE [None]
  - HAEMATEMESIS [None]
  - MELAENA [None]
  - PLEURISY [None]
  - PULMONARY OEDEMA [None]
  - SCREAMING [None]
